FAERS Safety Report 4587685-4 (Version None)
Quarter: 2005Q1

REPORT INFORMATION
  Report Type: 
  Country: None (occurrence: None)
  Receive Date: 20050215
  Receipt Date: 20050201
  Transmission Date: 20050727
  Serious: Yes (Hospitalization)
  Sender: FDA-Public Use
  Company Number: 2005-BP-01820BP

PATIENT
  Sex: Female

DRUGS (1)
  1. COMBIVENT [Suspect]
     Indication: CHRONIC OBSTRUCTIVE PULMONARY DISEASE
     Dosage: 8 PUFF (SEE TEXT, 103 MCG/18 MCG 2 PUFFS QID), IH
     Route: 055
     Dates: start: 19950101

REACTIONS (3)
  - BREAST CANCER FEMALE [None]
  - BRONCHITIS [None]
  - PNEUMONIA [None]
